FAERS Safety Report 9878424 (Version 3)
Quarter: 2014Q4

REPORT INFORMATION
  Report Type: Spontaneous
  Country: US (occurrence: US)
  Receive Date: 20140206
  Receipt Date: 20141023
  Transmission Date: 20150529
  Serious: Yes (Hospitalization, Other)
  Sender: FDA-Public Use
  Company Number: US-009507513-1402USA002007

PATIENT
  Sex: Female

DRUGS (1)
  1. NUVARING [Suspect]
     Active Substance: ETHINYL ESTRADIOL\ETONOGESTREL
     Indication: CONTRACEPTION
     Dosage: UNK
     Route: 067
     Dates: start: 200907, end: 20100201

REACTIONS (6)
  - Fibromyalgia [Unknown]
  - Hypertension [Unknown]
  - Obesity [Unknown]
  - Depression [Unknown]
  - Pulmonary embolism [Unknown]
  - Bronchitis [Unknown]

NARRATIVE: CASE EVENT DATE: 20100127
